FAERS Safety Report 23496403 (Version 1)
Quarter: 2024Q1

REPORT INFORMATION
  Report Type: Spontaneous
  Country: US (occurrence: None)
  Receive Date: 20240207
  Receipt Date: 20240207
  Transmission Date: 20240410
  Serious: No
  Sender: FDA-Public Use
  Company Number: US-ROCHE-3361793

PATIENT
  Age: 53 Year
  Sex: Female
  Weight: 140.74 kg

DRUGS (18)
  1. XOLAIR [Suspect]
     Active Substance: OMALIZUMAB
     Indication: Urticaria
     Dosage: TWO 150 MG INJECTIONS PER DOSE
     Route: 058
  2. XOLAIR [Suspect]
     Active Substance: OMALIZUMAB
  3. XOLAIR [Suspect]
     Active Substance: OMALIZUMAB
     Indication: Asthma
  4. XOLAIR [Suspect]
     Active Substance: OMALIZUMAB
  5. BUDESONIDE [Concomitant]
     Active Substance: BUDESONIDE
     Indication: Asthma
     Dosage: MIXED WITH ALBUTEROL SULFATE
     Route: 055
  6. DEXAMETHASONE SODIUM PHOSPHATE [Concomitant]
     Active Substance: DEXAMETHASONE PHOSPHATE\DEXAMETHASONE SODIUM PHOSPHATE
     Indication: Asthma
     Dosage: .5 ML PER DOSE
     Route: 055
  7. TRELEGY ELLIPTA [Concomitant]
     Active Substance: FLUTICASONE FUROATE\UMECLIDINIUM BROMIDE\VILANTEROL TRIFENATATE
     Indication: Asthma
     Dosage: 200MCG/62.5MCG/25MCG
     Route: 055
  8. AZELASTINE HYDROCHLORIDE [Concomitant]
     Active Substance: AZELASTINE HYDROCHLORIDE
     Indication: Hypersensitivity
     Dosage: 3 SQUIRTS PER NOSTRIL
     Route: 045
  9. PREDNISONE [Concomitant]
     Active Substance: PREDNISONE
     Indication: Asthma
     Dosage: AS NEEDED FOR BAD AIR QUALITY DAYS UP TO 3 TIMES A DAY
     Route: 048
  10. SYNTHROID [Concomitant]
     Active Substance: LEVOTHYROXINE SODIUM
     Indication: Hypothyroidism
     Dosage: .025 MG ON EMPTY STOMACH IN MORNING
     Route: 048
  11. ESTRADIOL [Concomitant]
     Active Substance: ESTRADIOL
     Route: 062
  12. TESTOSTERONE [Concomitant]
     Active Substance: TESTOSTERONE
     Dosage: 1/2 ML TOPICALLY TO INNER THIGHS
     Route: 061
  13. HYDROCHLOROTHIAZIDE\LISINOPRIL [Concomitant]
     Active Substance: HYDROCHLOROTHIAZIDE\LISINOPRIL
     Indication: Hypertension
     Dosage: 10/12.5 MG IN THE MORNING
     Route: 048
     Dates: start: 2002
  14. DILTIAZEM HYDROCHLORIDE [Concomitant]
     Active Substance: DILTIAZEM HYDROCHLORIDE
     Route: 048
     Dates: start: 202201
  15. ASPIRIN [Concomitant]
     Active Substance: ASPIRIN
     Indication: Blood cholesterol increased
     Dosage: TWO TABLETS PER DOSE
     Route: 048
  16. MONTELUKAST [Concomitant]
     Active Substance: MONTELUKAST SODIUM
     Indication: Hypersensitivity
     Route: 048
  17. DESLORATADINE [Concomitant]
     Active Substance: DESLORATADINE
     Indication: Hypersensitivity
     Route: 048
  18. ALBUTEROL SULFATE [Concomitant]
     Active Substance: ALBUTEROL SULFATE
     Indication: Asthma
     Dosage: 0.083% TWICE A DAY AS NEEDED IN ADDITION TO DAILY DOSE
     Route: 055

REACTIONS (8)
  - Myocarditis [Not Recovered/Not Resolved]
  - Lymphoedema [Recovering/Resolving]
  - Hyperlipidaemia [Recovering/Resolving]
  - Occupational exposure to product [Unknown]
  - Urticaria [Not Recovered/Not Resolved]
  - Contusion [Not Recovered/Not Resolved]
  - Product complaint [Unknown]
  - Device malfunction [Unknown]

NARRATIVE: CASE EVENT DATE: 20210901
